FAERS Safety Report 5800602-1 (Version None)
Quarter: 2008Q3

REPORT INFORMATION
  Report Type: 
  Country: None (occurrence: None)
  Receive Date: 20080703
  Receipt Date: 20080625
  Transmission Date: 20090109
  Serious: Yes (Other)
  Sender: FDA-Public Use
  Company Number: US-ABBOTT-08P-163-0458878-00

PATIENT
  Sex: Male
  Weight: 83.99 kg

DRUGS (2)
  1. SYNTHROID [Suspect]
     Indication: AUTOIMMUNE THYROIDITIS
     Dosage: 88 MCG IN AM AND 44 MCG IN PM
     Route: 048
     Dates: start: 20071201
  2. CONTRAST MEDIA [Concomitant]
     Indication: SCAN WITH CONTRAST

REACTIONS (4)
  - LUNG NEOPLASM MALIGNANT [None]
  - METABOLIC FUNCTION TEST ABNORMAL [None]
  - METASTATIC NEOPLASM [None]
  - NEPHROLITHIASIS [None]
